FAERS Safety Report 9051227 (Version 2)
Quarter: 2013Q1

REPORT INFORMATION
  Report Type: Spontaneous
  Country: IT (occurrence: IT)
  Receive Date: 20130206
  Receipt Date: 20130326
  Transmission Date: 20140127
  Serious: Yes (Death, Hospitalization)
  Sender: FDA-Public Use
  Company Number: IT-SANOFI-AVENTIS-2013SA002809

PATIENT
  Age: 81 Year
  Sex: Female

DRUGS (16)
  1. CLEXANE T [Suspect]
     Indication: DEEP VEIN THROMBOSIS
     Dosage: FORM; PREFILLED SYRINGE
     Route: 058
     Dates: start: 20121024, end: 20121025
  2. SELEPARINA [Suspect]
     Indication: DEEP VEIN THROMBOSIS
     Dosage: STRENGTH: 7600 IU
     Route: 058
  3. SELEPARINA [Suspect]
     Indication: DEEP VEIN THROMBOSIS
     Dosage: STRENGTH: 7600 IU
     Route: 058
     Dates: start: 20120917, end: 20120923
  4. ARIXTRA [Suspect]
     Indication: DEEP VEIN THROMBOSIS
     Route: 058
     Dates: start: 20120923, end: 20121024
  5. ARIXTRA [Suspect]
     Indication: DEEP VEIN THROMBOSIS
     Route: 058
     Dates: start: 20121024, end: 20121024
  6. FUROSEMIDE [Concomitant]
  7. ALLOPURINOL [Concomitant]
  8. PANTORC [Concomitant]
  9. LACTULOSE [Concomitant]
  10. KCL-RETARD [Concomitant]
     Dosage: STRENGTH; 600 MG
  11. DILZENE [Concomitant]
     Dosage: STRENGTH; 300 MG
  12. URBASON SOLUBILE [Concomitant]
     Dosage: STRENGTH; 20 MG/ML
  13. FERROGRAD [Concomitant]
     Dosage: STRENGTH; 105 MG
  14. SIVASTIN [Concomitant]
     Dosage: STRENGTH; 20 MG
  15. TAZOCIN [Concomitant]
     Indication: ANTIBIOTIC PROPHYLAXIS
     Dosage: STRENGTH; 2G_0.250 G
  16. LORANS [Concomitant]
     Dosage: STRENGTH; 1 MG

REACTIONS (19)
  - Abdominal wall haematoma [Fatal]
  - Abdominal pain [Unknown]
  - Anaemia [Fatal]
  - General physical health deterioration [None]
  - Clostridium difficile colitis [None]
  - Dehydration [None]
  - Oedema peripheral [None]
  - Oedema peripheral [None]
  - Urinary tract infection bacterial [None]
  - Agitation [None]
  - Anuria [None]
  - Generalised oedema [None]
  - Somnolence [None]
  - Staphylococcal sepsis [None]
  - Proteus infection [None]
  - Cardiogenic shock [None]
  - Septic shock [None]
  - Pulmonary embolism [None]
  - Subcutaneous haematoma [None]
